FAERS Safety Report 6336877-2 (Version None)
Quarter: 2009Q3

REPORT INFORMATION
  Report Type: 
  Country: None (occurrence: None)
  Receive Date: 20090901
  Receipt Date: 20090821
  Transmission Date: 20100115
  Serious: Yes (Other)
  Sender: FDA-Public Use
  Company Number: PHHY2009BE35946

PATIENT
  Age: 15 Year
  Sex: Male
  Weight: 51 kg

DRUGS (2)
  1. RITALIN LA [Suspect]
     Indication: ATTENTION DEFICIT/HYPERACTIVITY DISORDER
     Dosage: 20 MG DAILY
     Dates: start: 20040101
  2. RITALIN [Suspect]
     Indication: ATTENTION DEFICIT/HYPERACTIVITY DISORDER
     Dosage: 2 X 10 MG DAILY
     Dates: start: 20020101, end: 20030101

REACTIONS (3)
  - DELAYED PUBERTY [None]
  - GROWTH RETARDATION [None]
  - PENIS DISORDER [None]
